FAERS Safety Report 7513594-4 (Version None)
Quarter: 2011Q2

REPORT INFORMATION
  Report Type: 
  Country: None (occurrence: None)
  Receive Date: 20110531
  Receipt Date: 20110518
  Transmission Date: 20111010
  Serious: Yes (Hospitalization)
  Sender: FDA-Public Use
  Company Number: ES-MYLANLABS-2011S1010566

PATIENT
  Age: 61 Year
  Sex: Female

DRUGS (1)
  1. DICLOFENAC SODIUM [Suspect]
     Route: 030

REACTIONS (5)
  - MYOCLONUS [None]
  - CARDIAC ARREST [None]
  - ANAPHYLACTIC REACTION [None]
  - CONVULSION [None]
  - METABOLIC ACIDOSIS [None]
